FAERS Safety Report 10642014 (Version 1)
Quarter: 2014Q4

REPORT INFORMATION
  Report Type: Report from Study
  Country: BR (occurrence: BR)
  Receive Date: 20141209
  Receipt Date: 20141209
  Transmission Date: 20150529
  Serious: Yes (Other)
  Sender: FDA-Public Use
  Company Number: PHHY2014BR160913

PATIENT
  Sex: Male
  Weight: 97 kg

DRUGS (4)
  1. GALVUS MET [Suspect]
     Active Substance: METFORMIN HYDROCHLORIDE\VILDAGLIPTIN
     Indication: DIABETES MELLITUS
     Dosage: 1 DF (TABLET), QD
     Route: 065
  2. EBIX [Concomitant]
     Active Substance: MEMANTINE HYDROCHLORIDE
     Indication: MEMORY IMPAIRMENT
     Dosage: 2 DF (TABLETS), QD
     Route: 065
     Dates: start: 2014
  3. EXELON PATCH [Suspect]
     Active Substance: RIVASTIGMINE
     Indication: PRODUCT USED FOR UNKNOWN INDICATION
     Dosage: 4.6 MG (PATCH 9MG/5CM2), QD
     Route: 062
     Dates: start: 2014
  4. PROLOPA [Suspect]
     Active Substance: BENSERAZIDE\LEVODOPA
     Indication: PARKINSON^S DISEASE
     Dosage: UNK
     Route: 065

REACTIONS (3)
  - Abasia [Not Recovered/Not Resolved]
  - Drug ineffective [Unknown]
  - Tremor [Unknown]
